FAERS Safety Report 5715782-6 (Version None)
Quarter: 2008Q2

REPORT INFORMATION
  Report Type: 
  Country: None (occurrence: None)
  Receive Date: 20080424
  Receipt Date: 20080424
  Transmission Date: 20081010
  Serious: No
  Sender: FDA-Public Use
  Company Number: None

PATIENT
  Sex: Male
  Weight: 19.9 kg

DRUGS (1)
  1. HEP FLUSH KIT [Suspect]
     Indication: INDWELLING CATHETER MANAGEMENT
     Dosage: 3 ML ONCE DAILY IV
     Route: 042
     Dates: start: 20080410, end: 20080419

REACTIONS (2)
  - ABDOMINAL PAIN UPPER [None]
  - PHARMACEUTICAL PRODUCT COMPLAINT [None]
